FAERS Safety Report 4429919-2 (Version None)
Quarter: 2004Q3

REPORT INFORMATION
  Report Type: 
  Country: None (occurrence: None)
  Receive Date: 20040816
  Receipt Date: 20040816
  Transmission Date: 20050211
  Serious: Yes (Hospitalization)
  Sender: FDA-Public Use
  Company Number: None

PATIENT
  Age: 71 Year
  Sex: Male
  Weight: 101.1521 kg

DRUGS (5)
  1. SELENIUM/200 MCG [Suspect]
     Indication: LUNG NEOPLASM MALIGNANT
     Dosage: 200 MCG/QD/PO
     Route: 048
     Dates: start: 20040324
  2. CARBAMAZEPINE [Concomitant]
  3. SIMVASTATIN [Concomitant]
  4. MULTI-VITAMIN [Concomitant]
  5. VIOXX [Concomitant]

REACTIONS (3)
  - COUGH [None]
  - METASTASES TO LUNG [None]
  - WEIGHT DECREASED [None]
